FAERS Safety Report 26074148 (Version 1)
Quarter: 2025Q4

REPORT INFORMATION
  Report Type: Spontaneous
  Country: US (occurrence: US)
  Receive Date: 20251121
  Receipt Date: 20251121
  Transmission Date: 20260118
  Serious: No
  Sender: ALEXION PHARMACEUTICALS
  Company Number: US-AstraZeneca-CH-00993883A

PATIENT
  Sex: Female

DRUGS (2)
  1. CRESTOR [Suspect]
     Active Substance: ROSUVASTATIN CALCIUM
     Route: 065
  2. TRYPTYR [Concomitant]
     Active Substance: ACOLTREMON
     Route: 065

REACTIONS (2)
  - Eye disorder [Unknown]
  - Vision blurred [Unknown]
